FAERS Safety Report 9715897 (Version 1)
Quarter: 2013Q4

REPORT INFORMATION
  Report Type: Spontaneous
  Country: US (occurrence: US)
  Receive Date: 20131127
  Receipt Date: 20131127
  Transmission Date: 20140711
  Serious: Yes (Other)
  Sender: FDA-Public Use
  Company Number: US-SA-2013SA122574

PATIENT
  Age: 73 Year
  Sex: Male

DRUGS (2)
  1. LANTUS SOLOSTAR [Suspect]
     Indication: TYPE 2 DIABETES MELLITUS
     Dosage: 38-42 UNITS
     Route: 058
  2. SOLOSTAR [Concomitant]

REACTIONS (3)
  - Back disorder [Unknown]
  - Pancreatic carcinoma [Recovering/Resolving]
  - Blood glucose increased [Unknown]
